FAERS Safety Report 4413234-7 (Version None)
Quarter: 2004Q3

REPORT INFORMATION
  Report Type: 
  Country: None (occurrence: None)
  Receive Date: 20040802
  Receipt Date: 20040721
  Transmission Date: 20050211
  Serious: Yes (Hospitalization)
  Sender: FDA-Public Use
  Company Number: JP-BRISTOL-MYERS SQUIBB COMPANY-12649596

PATIENT
  Age: 47 Year
  Sex: Male

DRUGS (9)
  1. ZERIT [Suspect]
     Indication: HIV INFECTION
     Route: 048
     Dates: start: 20031028, end: 20031210
  2. EPIVIR [Suspect]
     Indication: HIV INFECTION
     Route: 048
     Dates: start: 20031022, end: 20031210
  3. KALETRA [Suspect]
     Indication: HIV INFECTION
     Route: 048
     Dates: start: 20031028, end: 20031210
  4. RETROVIR [Concomitant]
     Route: 048
     Dates: start: 20031022, end: 20031028
  5. CRIXIVAN [Concomitant]
     Route: 048
     Dates: start: 20031022, end: 20031028
  6. NORVIR [Concomitant]
     Route: 048
     Dates: start: 20031022, end: 20031028
  7. DENOSINE [Concomitant]
     Dates: start: 20031017, end: 20031028
  8. LEVOFLOXACIN [Concomitant]
     Route: 048
     Dates: start: 20031019, end: 20031111
  9. BAKTAR [Concomitant]
     Route: 048
     Dates: start: 20031017

REACTIONS (2)
  - ATYPICAL MYCOBACTERIAL INFECTION [None]
  - PNEUMONIA [None]
